FAERS Safety Report 24075854 (Version 1)
Quarter: 2024Q3

REPORT INFORMATION
  Report Type: Spontaneous
  Country: US (occurrence: US)
  Receive Date: 20240710
  Receipt Date: 20240710
  Transmission Date: 20241016
  Serious: Yes (Other)
  Sender: LEXICON PHARMACEUTICALS
  Company Number: US-LEX-000371

PATIENT
  Age: 85 Year
  Sex: Male

DRUGS (1)
  1. INPEFA [Suspect]
     Active Substance: SOTAGLIFLOZIN
     Indication: Product used for unknown indication
     Dosage: IN THE MORNING.
     Route: 048

REACTIONS (1)
  - Cardiopulmonary bypass [Recovering/Resolving]

NARRATIVE: CASE EVENT DATE: 20240601
